FAERS Safety Report 4975216-6 (Version None)
Quarter: 2006Q2

REPORT INFORMATION
  Report Type: 
  Country: None (occurrence: None)
  Receive Date: 20060418
  Receipt Date: 20060409
  Transmission Date: 20061013
  Serious: Yes (Hospitalization)
  Sender: FDA-Public Use
  Company Number: CA-JNJFOC-20060400542

PATIENT
  Sex: Male
  Weight: 54 kg

DRUGS (19)
  1. REMICADE [Suspect]
     Indication: RHEUMATOID ARTHRITIS
     Route: 042
  2. BENADRYL [Concomitant]
     Indication: PREMEDICATION
     Route: 048
  3. TYLENOL (CAPLET) [Concomitant]
     Indication: PREMEDICATION
     Route: 048
  4. GRAVOL TAB [Concomitant]
     Indication: PREMEDICATION
     Route: 048
  5. SALAZOPYRIN [Concomitant]
  6. ARTHROTEC [Concomitant]
  7. ARTHROTEC [Concomitant]
  8. SEMIDINE [Concomitant]
  9. NOVASEN [Concomitant]
  10. VITAMIN B6 [Concomitant]
  11. ISONIAZID [Concomitant]
  12. DILAUDID [Concomitant]
  13. DIAZEPAM [Concomitant]
  14. DILTIAZEM HCL [Concomitant]
  15. AMYTAL [Concomitant]
  16. METHOTREXATE [Concomitant]
  17. DURAGESIC-100 [Concomitant]
  18. VENTOLIN [Concomitant]
  19. NITRO [Concomitant]

REACTIONS (6)
  - CEREBROVASCULAR ACCIDENT [None]
  - DIABETIC COMA [None]
  - DIZZINESS [None]
  - FATIGUE [None]
  - VOMITING [None]
  - WEIGHT DECREASED [None]
